FAERS Safety Report 25751077 (Version 2)
Quarter: 2025Q4

REPORT INFORMATION
  Report Type: Report from Study
  Country: CA (occurrence: CA)
  Receive Date: 20250902
  Receipt Date: 20251001
  Transmission Date: 20260118
  Serious: Yes (Hospitalization)
  Sender: JOHNSON AND JOHNSON
  Company Number: CA-JNJFOC-20250838109

PATIENT
  Age: 49 Year
  Sex: Female

DRUGS (1)
  1. SIMPONI [Suspect]
     Active Substance: GOLIMUMAB
     Indication: Psoriatic arthropathy
     Route: 058

REACTIONS (1)
  - Escherichia infection [Recovering/Resolving]

NARRATIVE: CASE EVENT DATE: 20250826
